FAERS Safety Report 11275162 (Version 1)
Quarter: 2015Q3

REPORT INFORMATION
  Report Type: Spontaneous
  Country: US (occurrence: None)
  Receive Date: 20150715
  Receipt Date: 20150715
  Transmission Date: 20151125
  Serious: Yes (Death)
  Sender: FDA-Public Use
  Company Number: None

PATIENT
  Age: 60 Year
  Sex: Male

DRUGS (11)
  1. ARICEPT [Concomitant]
     Active Substance: DONEPEZIL HYDROCHLORIDE
  2. AVONEX [Suspect]
     Active Substance: INTERFERON BETA-1A
     Indication: MULTIPLE SCLEROSIS
     Route: 058
     Dates: start: 20140409
  3. MIRAPEX [Concomitant]
     Active Substance: PRAMIPEXOLE DIHYDROCHLORIDE
  4. LYRICA [Concomitant]
     Active Substance: PREGABALIN
  5. VESICARE [Concomitant]
     Active Substance: SOLIFENACIN SUCCINATE
  6. ASPIRIN. [Concomitant]
     Active Substance: ASPIRIN
  7. GABAPENTIN. [Concomitant]
     Active Substance: GABAPENTIN
  8. FLOMAX [Concomitant]
     Active Substance: TAMSULOSIN HYDROCHLORIDE
  9. MORPHINE [Concomitant]
     Active Substance: MORPHINE
  10. LEXAPRO [Concomitant]
     Active Substance: ESCITALOPRAM OXALATE
  11. ZETIA [Concomitant]
     Active Substance: EZETIMIBE

REACTIONS (1)
  - Death [None]

NARRATIVE: CASE EVENT DATE: 20150614
